FAERS Safety Report 7126180-5 (Version None)
Quarter: 2010Q4

REPORT INFORMATION
  Report Type: 
  Country: None (occurrence: None)
  Receive Date: 20101129
  Receipt Date: 20101118
  Transmission Date: 20110411
  Serious: Yes (Hospitalization, Other)
  Sender: FDA-Public Use
  Company Number: FI-ROCHE-743363

PATIENT
  Age: 72 Year
  Sex: Male

DRUGS (3)
  1. AVASTIN [Suspect]
     Indication: COLORECTAL CANCER
     Dosage: DOSE UNREPORTED, FREQUENCY REPORTED AS 1 INFUSION EVERY THREE WEEKS
     Route: 042
     Dates: start: 20101015
  2. DIGOXIN [Concomitant]
     Indication: ATRIAL FLUTTER
  3. BETA BLOCKER NOS [Concomitant]
     Indication: ATRIAL FLUTTER

REACTIONS (3)
  - ASTHENIA [None]
  - BRADYCARDIA [None]
  - RENAL FAILURE [None]
